FAERS Safety Report 6894103-X (Version None)
Quarter: 2010Q3

REPORT INFORMATION
  Report Type: 
  Country: None (occurrence: None)
  Receive Date: 20100802
  Receipt Date: 20100722
  Transmission Date: 20110219
  Serious: Yes (Other)
  Sender: FDA-Public Use
  Company Number: US-JNJFOC-20080404826

PATIENT
  Sex: Male
  Weight: 111.13 kg

DRUGS (38)
  1. DURAGESIC-100 [Suspect]
     Indication: BACK PAIN
     Route: 062
  2. DURAGESIC-100 [Suspect]
     Route: 062
  3. DURAGESIC-100 [Suspect]
     Indication: BACK INJURY
     Route: 062
  4. DURAGESIC-100 [Suspect]
     Route: 062
  5. DURAGESIC-100 [Suspect]
     Indication: PRODUCT USED FOR UNKNOWN INDICATION
     Route: 062
  6. AMBIEN [Suspect]
     Indication: INSOMNIA
     Route: 048
  7. VALIUM [Suspect]
     Indication: DEPRESSION
     Route: 048
  8. VALIUM [Suspect]
     Indication: MUSCLE RELAXANT THERAPY
     Route: 048
  9. PERCOCET [Suspect]
     Indication: PAIN
     Route: 048
  10. MORPHINE [Suspect]
     Indication: PRODUCT USED FOR UNKNOWN INDICATION
     Route: 065
  11. TOPAMAX [Concomitant]
     Indication: CONVULSION
     Route: 048
  12. ADVAIR DISKUS 100/50 [Concomitant]
     Indication: ASTHMA
     Dosage: 250/ 50 MG, ONE PUFF DAILY
     Route: 055
  13. NASONEX [Concomitant]
     Indication: SEASONAL ALLERGY
     Dosage: ONE SPRAY IN EACH NOSTRIL DAILY
     Route: 045
  14. PREVACID [Concomitant]
     Indication: GASTROOESOPHAGEAL REFLUX DISEASE
     Route: 048
  15. PREVACID [Concomitant]
     Route: 048
  16. PREVACID [Concomitant]
     Indication: GASTRIC DISORDER
     Route: 048
  17. PREVACID [Concomitant]
     Route: 048
  18. IBUPROFEN [Concomitant]
     Indication: PAIN
     Route: 048
  19. LIDODERM [Concomitant]
     Indication: BACK PAIN
     Route: 062
  20. LIDODERM [Concomitant]
     Dosage: 3 IN 12 HOURS THEN AFTER 12 HOURS
     Route: 062
  21. LIDODERM [Concomitant]
     Indication: PAIN
     Dosage: 3 IN 12 HOURS THEN AFTER 12 HOURS
     Route: 062
  22. LIDODERM [Concomitant]
     Route: 062
  23. VITAMIN B COMPLEX CAP [Concomitant]
     Indication: MEDICAL DIET
     Route: 048
  24. ASPIRIN [Concomitant]
     Indication: CARDIAC DISORDER
     Route: 048
  25. MULTI-VITAMINS [Concomitant]
     Indication: MEDICAL DIET
     Route: 048
  26. FEXOFENADINE [Concomitant]
     Indication: MULTIPLE ALLERGIES
     Route: 048
  27. FEXOFENADINE [Concomitant]
     Indication: SINUS DISORDER
     Route: 048
  28. FEXOFENADINE [Concomitant]
     Indication: SEASONAL ALLERGY
     Route: 048
  29. SINGULAIR [Concomitant]
     Indication: MULTIPLE ALLERGIES
     Route: 048
  30. SINGULAIR [Concomitant]
     Indication: ASTHMA
     Route: 048
  31. ADVAIR DISKUS 100/50 [Concomitant]
     Route: 055
  32. FLOMAX [Concomitant]
     Indication: MICTURITION DISORDER
     Route: 048
  33. PREVACID [Concomitant]
     Route: 048
  34. OXYCODONE HCL [Concomitant]
     Indication: PAIN
     Dosage: 10/325 MG TID AS NEEDED
     Route: 048
  35. INHALERS (UNSPECIFIED) [Concomitant]
     Indication: ASTHMA
     Dosage: 2 PUFFS EVERY 4-6 HOURS AS NEEDED
     Route: 065
  36. VITAMIN TAB [Concomitant]
     Indication: NUTRITIONAL SUPPORT
     Route: 048
  37. MELOXICAM [Concomitant]
     Indication: ARTHRITIS
     Route: 048
  38. NASACORT [Concomitant]
     Indication: SINUS DISORDER
     Dosage: 1 SPRAY DAILY
     Route: 045

REACTIONS (28)
  - APPLICATION SITE PAIN [None]
  - ARTHRALGIA [None]
  - ATTENTION DEFICIT/HYPERACTIVITY DISORDER [None]
  - BACK PAIN [None]
  - BLOOD CHOLESTEROL INCREASED [None]
  - CARPAL TUNNEL SYNDROME [None]
  - DEPRESSION [None]
  - DIABETES MELLITUS [None]
  - DISORIENTATION [None]
  - EATING DISORDER [None]
  - HYPERHIDROSIS [None]
  - HYPERTENSION [None]
  - IMPAIRED GASTRIC EMPTYING [None]
  - INAPPROPRIATE SCHEDULE OF DRUG ADMINISTRATION [None]
  - INSOMNIA [None]
  - MUSCLE SPASMS [None]
  - PAIN [None]
  - PAIN IN EXTREMITY [None]
  - PROSTATIC DISORDER [None]
  - SKIN EXFOLIATION [None]
  - SOMNOLENCE [None]
  - SPONDYLITIS [None]
  - THERAPEUTIC RESPONSE DECREASED [None]
  - THERAPY CESSATION [None]
  - TRIGGER FINGER [None]
  - WEIGHT DECREASED [None]
  - WEIGHT FLUCTUATION [None]
  - WRONG TECHNIQUE IN DRUG USAGE PROCESS [None]
